FAERS Safety Report 5240463-5 (Version None)
Quarter: 2007Q1

REPORT INFORMATION
  Report Type: 
  Country: None (occurrence: None)
  Receive Date: 20070219
  Receipt Date: 20070209
  Transmission Date: 20070707
  Serious: Yes (Disabling)
  Sender: FDA-Public Use
  Company Number: US-ROCHE-434151

PATIENT
  Age: 19 Year
  Sex: Male
  Weight: 140 kg

DRUGS (3)
  1. ACCUTANE [Suspect]
     Indication: ACNE
     Route: 048
     Dates: start: 20030228, end: 20030315
  2. ACCUTANE [Suspect]
     Route: 048
     Dates: start: 20030116, end: 20030228
  3. ACCUTANE [Suspect]
     Route: 048
     Dates: start: 20021115, end: 20030116

REACTIONS (11)
  - ANXIETY [None]
  - COELIAC DISEASE [None]
  - COLITIS [None]
  - CROHN'S DISEASE [None]
  - DEPRESSION [None]
  - GASTROINTESTINAL INJURY [None]
  - HAEMATOCHEZIA [None]
  - INFLAMMATORY BOWEL DISEASE [None]
  - INTESTINAL HAEMORRHAGE [None]
  - PILONIDAL CYST [None]
  - VERTIGO [None]
